FAERS Safety Report 20624776 (Version 1)
Quarter: 2022Q1

REPORT INFORMATION
  Report Type: Spontaneous
  Country: US (occurrence: US)
  Receive Date: 20220323
  Receipt Date: 20220323
  Transmission Date: 20220423
  Serious: No
  Sender: FDA-Public Use
  Company Number: US-drreddys-SPO/USA/22/0147832

PATIENT
  Age: 78 Year
  Sex: Male
  Weight: 62.55 kg

DRUGS (1)
  1. DOANS EXTRA STRENGTH [Suspect]
     Active Substance: MAGNESIUM SALICYLATE
     Indication: Back pain
     Dates: start: 20220313, end: 20220314

REACTIONS (3)
  - Dizziness [Unknown]
  - Vertigo [Unknown]
  - Product use complaint [Unknown]
